FAERS Safety Report 4350969-9 (Version None)
Quarter: 2004Q2

REPORT INFORMATION
  Report Type: 
  Country: None (occurrence: None)
  Receive Date: 20040427
  Receipt Date: 20040412
  Transmission Date: 20050107
  Serious: Yes (Hospitalization)
  Sender: FDA-Public Use
  Company Number: 170576

PATIENT
  Age: 37 Year
  Sex: Female
  Weight: 81.6475 kg

DRUGS (5)
  1. AVONEX [Suspect]
     Indication: MULTIPLE SCLEROSIS
     Dosage: 30 MCG QW IM
     Route: 030
     Dates: start: 19960101
  2. NEURONTIN [Concomitant]
  3. ZOLOFT [Concomitant]
  4. EFFEXOR [Concomitant]
  5. TOPAMAX [Concomitant]

REACTIONS (6)
  - CYSTITIS [None]
  - DEPRESSION [None]
  - ENURESIS [None]
  - FALL [None]
  - FRACTURED COCCYX [None]
  - SPINAL COMPRESSION FRACTURE [None]
